FAERS Safety Report 5944104-0 (Version None)
Quarter: 2008Q4

REPORT INFORMATION
  Report Type: 
  Country: None (occurrence: None)
  Receive Date: 20081021
  Receipt Date: 20080321
  Transmission Date: 20090506
  Serious: Yes (Other)
  Sender: FDA-Public Use
  Company Number: US-WYE-H03270508

PATIENT
  Age: 59 Year
  Sex: Female
  Weight: 68.55 kg

DRUGS (3)
  1. PREMARIN [Suspect]
     Indication: HORMONE THERAPY
     Dosage: 0.625 MG 1X PER 1 DAY, ORAL
     Route: 048
     Dates: start: 20080201, end: 20080201
  2. MICARDIS [Concomitant]
  3. PRILOSEC [Concomitant]

REACTIONS (4)
  - DEPRESSION [None]
  - DRUG INEFFECTIVE [None]
  - MOOD SWINGS [None]
  - RESTLESSNESS [None]
